FAERS Safety Report 17688446 (Version 1)
Quarter: 2020Q2

REPORT INFORMATION
  Report Type: Spontaneous
  Country: GB (occurrence: GB)
  Receive Date: 20200421
  Receipt Date: 20200421
  Transmission Date: 20200714
  Serious: Yes (Disabling, Other)
  Sender: FDA-Public Use
  Company Number: GB-ELI_LILLY_AND_COMPANY-GB202004006963

PATIENT
  Sex: Female
  Weight: 56 kg

DRUGS (1)
  1. FLUOXETINE [Suspect]
     Active Substance: FLUOXETINE HYDROCHLORIDE
     Indication: DEPRESSION SUICIDAL
     Dosage: 20 MG, UNKNOWN
     Route: 048
     Dates: start: 20200114, end: 20200227

REACTIONS (2)
  - Libido decreased [Not Recovered/Not Resolved]
  - Sexual dysfunction [Unknown]

NARRATIVE: CASE EVENT DATE: 20200118
